FAERS Safety Report 17013156 (Version 1)
Quarter: 2019Q4

REPORT INFORMATION
  Report Type: Report from Study
  Country: None (occurrence: US)
  Receive Date: 20191109
  Receipt Date: 20191109
  Transmission Date: 20200122
  Serious: Yes (Other)
  Sender: FDA-Public Use
  Company Number: US-ABBVIE-19K-163-2994884-00

PATIENT
  Sex: Female

DRUGS (2)
  1. PERCOCET [Suspect]
     Active Substance: ACETAMINOPHEN\OXYCODONE HYDROCHLORIDE
     Indication: PRODUCT USED FOR UNKNOWN INDICATION
     Route: 065
  2. LUPRON DEPOT [Suspect]
     Active Substance: LEUPROLIDE ACETATE
     Indication: PRODUCT USED FOR UNKNOWN INDICATION
     Route: 065

REACTIONS (13)
  - Essential hypertension [Unknown]
  - Colon cancer metastatic [Unknown]
  - Uterine haemorrhage [Not Recovered/Not Resolved]
  - Leiomyoma [Unknown]
  - Abdominal pain [Unknown]
  - Pelvic pain [Unknown]
  - Dizziness [Unknown]
  - Chronic obstructive pulmonary disease [Unknown]
  - Constipation [Unknown]
  - Anxiety [Unknown]
  - Nausea [Unknown]
  - Dyspnoea [Unknown]
  - Procedural pain [Unknown]

NARRATIVE: CASE EVENT DATE: 2019
